FAERS Safety Report 23261163 (Version 1)
Quarter: 2023Q4

REPORT INFORMATION
  Report Type: Spontaneous
  Country: US (occurrence: US)
  Receive Date: 20231205
  Receipt Date: 20231205
  Transmission Date: 20240109
  Serious: No
  Sender: FDA-Public Use
  Company Number: US-CELLTRION INC.-2023US006641

PATIENT

DRUGS (5)
  1. RITUXIMAB [Suspect]
     Active Substance: RITUXIMAB
     Indication: Fibrillary glomerulonephritis
     Dosage: 1 GRAM, DELIVERED DURING INPATIENT TREATMENT
  2. RITUXIMAB [Suspect]
     Active Substance: RITUXIMAB
     Dosage: 1 GRAM, DELIVERED DURING OUTPATIENT TREATMENT
  3. PREDNISONE [Suspect]
     Active Substance: PREDNISONE
     Indication: Fibrillary glomerulonephritis
     Dosage: 20 MG,THREE TIMES DAILY FOR ONE MONTH
  4. SULFAMETHOXAZOLE\TRIMETHOPRIM [Concomitant]
     Active Substance: SULFAMETHOXAZOLE\TRIMETHOPRIM
     Indication: Prophylaxis
     Dosage: THREE TIMES PER WEEK
  5. METHYLPREDNISOLONE [Concomitant]
     Active Substance: METHYLPREDNISOLONE
     Dosage: 500 MG, DAILY (INTRAVENOUS EMPIRIC PULSE DOSE)
     Route: 042

REACTIONS (1)
  - Drug ineffective for unapproved indication [Unknown]
